FAERS Safety Report 6015500-0 (Version None)
Quarter: 2008Q4

REPORT INFORMATION
  Report Type: 
  Country: None (occurrence: None)
  Receive Date: 20081222
  Receipt Date: 20081212
  Transmission Date: 20090506
  Serious: Yes (Hospitalization)
  Sender: FDA-Public Use
  Company Number: FR-WYE-H07237908

PATIENT
  Sex: Female

DRUGS (11)
  1. INIPOMP [Suspect]
     Dosage: UNKNOWN
     Route: 048
     Dates: start: 20081017, end: 20081017
  2. PLAQUENIL [Concomitant]
     Indication: SYSTEMIC LUPUS ERYTHEMATOSUS
     Dosage: UNKNOWN
     Route: 048
     Dates: start: 20080601, end: 20080101
  3. PLAQUENIL [Concomitant]
     Dosage: 400 MG - FREQUENCY UNSPECIFIED
     Route: 048
     Dates: start: 20080801, end: 20080928
  4. PLAQUENIL [Concomitant]
     Dosage: 600 MG - FREQUENCY UNSPECIFIED
     Route: 048
     Dates: start: 20080929
  5. CYCLOPHOSPHAMIDE [Concomitant]
     Indication: SYSTEMIC LUPUS ERYTHEMATOSUS
     Dosage: UNKNOWN
     Dates: start: 19970101
  6. METHYLPREDNISOLONE 16MG TAB [Concomitant]
     Indication: SYSTEMIC LUPUS ERYTHEMATOSUS
     Dosage: UNKNOWN
     Dates: start: 19970101, end: 20080101
  7. PREDNISONE [Concomitant]
     Indication: SYSTEMIC LUPUS ERYTHEMATOSUS
     Dosage: UNKNOWN
     Dates: start: 19970101, end: 20080101
  8. IXPRIM [Suspect]
     Indication: ARTHRALGIA
     Dosage: UNKNOWN
     Route: 048
     Dates: start: 20081002, end: 20081001
  9. IXPRIM [Suspect]
     Dosage: ^1 DOSAGE FORMS, 1 IN 1 D^
     Route: 048
     Dates: start: 20081017, end: 20081017
  10. NABUCOX [Suspect]
     Indication: ARTHRALGIA
     Dosage: ^1 DOSAGE FORMS, 1 IN 1 D^
     Route: 048
     Dates: start: 20081002, end: 20081001
  11. NABUCOX [Suspect]
     Dosage: ^1 DOSAGE FORMS, 1 IN 1 D^
     Route: 048
     Dates: start: 20081017, end: 20081017

REACTIONS (6)
  - FEELING HOT [None]
  - OEDEMA [None]
  - PRURITUS [None]
  - PYREXIA [None]
  - RASH ERYTHEMATOUS [None]
  - RASH VESICULAR [None]
